FAERS Safety Report 9052795 (Version 2)
Quarter: 2013Q1

REPORT INFORMATION
  Report Type: Report from Study
  Country: JP (occurrence: JP)
  Receive Date: 20130207
  Receipt Date: 20130325
  Transmission Date: 20140127
  Serious: Yes (Death, Life-Threatening, Hospitalization)
  Sender: FDA-Public Use
  Company Number: JP-EISAI INC-E2020-11940-CLI-JP

PATIENT
  Age: 89 None
  Sex: Female

DRUGS (10)
  1. ARICEPT [Suspect]
     Indication: DEMENTIA ALZHEIMER^S TYPE
     Route: 048
     Dates: start: 20100910, end: 20100923
  2. ARICEPT [Suspect]
     Route: 048
     Dates: start: 20100924, end: 20120307
  3. ARICEPT [Suspect]
     Route: 048
     Dates: start: 20120308, end: 20130206
  4. URITOS [Concomitant]
     Dosage: 0.2 MG
     Route: 048
     Dates: start: 20080407
  5. LASIX [Concomitant]
     Dosage: 20 MG
     Route: 048
     Dates: start: 20080407
  6. JANUVIA [Concomitant]
     Dosage: 50 MG (1DF X 1)
     Route: 048
     Dates: start: 20110908, end: 20130206
  7. BASEN [Concomitant]
     Dosage: 0.9 MG (3 DF X 1)
     Route: 048
     Dates: end: 20130206
  8. PARIET [Concomitant]
     Dosage: 10 MG (1DF X 1)
     Route: 048
     Dates: end: 20130206
  9. LOCHOL [Concomitant]
     Dosage: 20 MG (1DF X 1)
     Route: 048
     Dates: end: 20130206
  10. BUFFERIN [Concomitant]
     Indication: PROPHYLAXIS
     Dosage: 81 MG DAILY
     Route: 048
     Dates: end: 20130206

REACTIONS (1)
  - Brain stem haemorrhage [Fatal]
